FAERS Safety Report 6353942 (Version 6)
Quarter: 2014Q2

REPORT INFORMATION
  Report Type: Report from Study
  Country: US (occurrence: US)
  Receive Date: 20070710
  Receipt Date: 20140611
  Transmission Date: 20141212
  Serious: Yes (Death, Congenital Anomaly, Other)
  Sender: FDA-Public Use
  Company Number: US-GILEAD-2007-0012626

PATIENT
  Age: 0 Day
  Sex: Female
  Weight: 1.11 kg

DRUGS (4)
  1. TRUVADA [Suspect]
     Indication: HIV INFECTION
     Dosage: 1 DF, UNK
     Route: 064
     Dates: start: 20070201, end: 20070704
  2. SUSTIVA [Suspect]
     Indication: HIV INFECTION
     Dosage: 600 MG, QD
     Route: 064
     Dates: end: 20070201
  3. VIRAMUNE [Suspect]
     Indication: HIV INFECTION
     Dosage: 400 MG, QD
     Route: 064
     Dates: start: 20070201, end: 20070704
  4. TRIMETHOPRIM SULFAMETHOXAZOLE [Concomitant]

REACTIONS (6)
  - Stillbirth [Fatal]
  - Dandy-Walker syndrome [Not Recovered/Not Resolved]
  - Multiple congenital abnormalities [Not Recovered/Not Resolved]
  - Foetal growth restriction [Not Recovered/Not Resolved]
  - Umbilical cord abnormality [Not Recovered/Not Resolved]
  - Breech presentation [Recovered/Resolved]
